FAERS Safety Report 15146614 (Version 1)
Quarter: 2018Q3

REPORT INFORMATION
  Report Type: Spontaneous
  Country: US (occurrence: US)
  Receive Date: 20180715
  Receipt Date: 20180715
  Transmission Date: 20181010
  Serious: Yes (Other)
  Sender: FDA-Public Use
  Company Number: US-BRISTOL-MYERS SQUIBB COMPANY-BMS-2018-066276

PATIENT
  Sex: Female
  Weight: 147.39 kg

DRUGS (1)
  1. ORENCIA [Suspect]
     Active Substance: ABATACEPT
     Indication: RHEUMATOID ARTHRITIS
     Route: 065

REACTIONS (4)
  - Tongue blistering [Unknown]
  - Pneumonia [Recovered/Resolved]
  - Urticaria [Unknown]
  - Pharyngitis streptococcal [Recovered/Resolved]
